FAERS Safety Report 4906300-0 (Version None)
Quarter: 2006Q1

REPORT INFORMATION
  Report Type: 
  Country: None (occurrence: None)
  Receive Date: 20060207
  Receipt Date: 20060125
  Transmission Date: 20060701
  Serious: Yes (Other)
  Sender: FDA-Public Use
  Company Number: 2006012875

PATIENT
  Age: 31 Year
  Sex: Female

DRUGS (1)
  1. DALACIN VAGINAL CREAM (CLINDAMYCIN PHOSPHATE) [Suspect]
     Indication: BACTERIAL INFECTION
     Dosage: TRANSDERMAL
     Route: 062
     Dates: start: 20060101, end: 20060101

REACTIONS (2)
  - HYPERSENSITIVITY [None]
  - PYREXIA [None]
